FAERS Safety Report 19962853 (Version 3)
Quarter: 2021Q4

REPORT INFORMATION
  Report Type: Spontaneous
  Country: AT (occurrence: AT)
  Receive Date: 20211018
  Receipt Date: 20211202
  Transmission Date: 20220303
  Serious: Yes (Other)
  Sender: FDA-Public Use
  Company Number: AT-BOEHRINGERINGELHEIM-2021-BI-131806

PATIENT
  Age: 54 Year
  Sex: Male

DRUGS (4)
  1. NINTEDANIB [Suspect]
     Active Substance: NINTEDANIB
     Indication: Non-small cell lung cancer
     Dates: start: 202011
  2. CISPLATIN [Concomitant]
     Active Substance: CISPLATIN
     Indication: Product used for unknown indication
     Dates: start: 201901, end: 2019
  3. PEMBROLIZUMAB [Concomitant]
     Active Substance: PEMBROLIZUMAB
     Indication: Product used for unknown indication
     Dates: start: 2019, end: 2019
  4. DOCETAXEL [Concomitant]
     Active Substance: DOCETAXEL
     Indication: Product used for unknown indication
     Dates: start: 202011

REACTIONS (6)
  - Malignant neoplasm progression [Not Recovered/Not Resolved]
  - Neutropenia [Unknown]
  - Inflammation [Unknown]
  - Fatigue [Unknown]
  - Syncope [Unknown]
  - Alopecia [Unknown]

NARRATIVE: CASE EVENT DATE: 20210801
